FAERS Safety Report 5125929-0 (Version None)
Quarter: 2006Q3

REPORT INFORMATION
  Report Type: 
  Country: None (occurrence: None)
  Receive Date: 20060811
  Receipt Date: 20060428
  Transmission Date: 20061208
  Serious: No
  Sender: FDA-Public Use
  Company Number: S06-USA-01695-01

PATIENT
  Age: 85 Year
  Sex: Female

DRUGS (4)
  1. NAMENDA [Suspect]
     Indication: DEMENTIA
     Dosage: 5 MG QD PO
     Route: 048
     Dates: start: 20060426
  2. ARICEPT [Concomitant]
  3. XANAX [Concomitant]
  4. TYLENOL W/ CODEINE [Concomitant]

REACTIONS (1)
  - ASTHENIA [None]
